FAERS Safety Report 5602595-9 (Version None)
Quarter: 2008Q1

REPORT INFORMATION
  Report Type: 
  Country: None (occurrence: None)
  Receive Date: 20080125
  Receipt Date: 20080116
  Transmission Date: 20080703
  Serious: Yes (Hospitalization)
  Sender: FDA-Public Use
  Company Number: GB-ASTRAZENECA-2008GB00100

PATIENT
  Age: 14 Year
  Sex: Female
  Weight: 45.3 kg

DRUGS (2)
  1. QUETIAPINE [Suspect]
     Route: 048
     Dates: start: 20070701
  2. QUETIAPINE [Suspect]
     Route: 048
     Dates: start: 20070101

REACTIONS (2)
  - DRUG INEFFECTIVE [None]
  - ELEVATED MOOD [None]
